FAERS Safety Report 14604134 (Version 1)
Quarter: 2018Q1

REPORT INFORMATION
  Report Type: Spontaneous
  Country: US (occurrence: US)
  Receive Date: 20180305
  Receipt Date: 20180305
  Transmission Date: 20180509
  Serious: Yes (Life-Threatening, Disabling, Other)
  Sender: FDA-Public Use
  Company Number: None

PATIENT
  Age: 13 Year
  Sex: Male
  Weight: 60.75 kg

DRUGS (8)
  1. SINGULAIR [Suspect]
     Active Substance: MONTELUKAST SODIUM
     Indication: NASAL CONGESTION
     Dosage: ?          QUANTITY:1 TABLET(S);?
     Route: 048
     Dates: start: 20080321, end: 20120713
  2. KIDS CHEWABLE MULTI VITAMIN AND OMEGA 3 [Concomitant]
  3. RANITIDINE. [Concomitant]
     Active Substance: RANITIDINE
  4. ALEVE [Concomitant]
     Active Substance: NAPROXEN SODIUM
  5. CLARITIN [Concomitant]
     Active Substance: LORATADINE
  6. ALBUTEROL INHALER [Concomitant]
     Active Substance: ALBUTEROL
  7. CARAFATE [Concomitant]
     Active Substance: SUCRALFATE
  8. PROBIOTICS [Concomitant]
     Active Substance: PROBIOTICS NOS

REACTIONS (4)
  - Depressed mood [None]
  - Abnormal behaviour [None]
  - Suicidal ideation [None]
  - Anger [None]

NARRATIVE: CASE EVENT DATE: 20090320
